FAERS Safety Report 9182474 (Version 1)
Quarter: 2013Q1

REPORT INFORMATION
  Report Type: Spontaneous
  Country: US (occurrence: US)
  Receive Date: 20130322
  Receipt Date: 20130322
  Transmission Date: 20140127
  Serious: Yes (Other)
  Sender: FDA-Public Use
  Company Number: US-BRISTOL-MYERS SQUIBB COMPANY-16754301

PATIENT
  Age: 61 Year
  Sex: Female

DRUGS (3)
  1. ERBITUX [Suspect]
  2. EUCERIN [Suspect]
  3. LUBRIDERM [Suspect]

REACTIONS (4)
  - Malignant neoplasm progression [Unknown]
  - Burning sensation [Recovering/Resolving]
  - Dry skin [Recovering/Resolving]
  - Skin fissures [Recovering/Resolving]
